FAERS Safety Report 26037287 (Version 1)
Quarter: 2025Q4

REPORT INFORMATION
  Report Type: Report from Study
  Country: US (occurrence: US)
  Receive Date: 20251112
  Receipt Date: 20251112
  Transmission Date: 20260117
  Serious: Yes (Other)
  Sender: JAZZ
  Company Number: US-JAZZ PHARMACEUTICALS-2025-US-025361

PATIENT
  Sex: Female

DRUGS (19)
  1. EPIDIOLEX [Suspect]
     Active Substance: CANNABIDIOL
     Indication: Epilepsy
     Dosage: 7 MILLILITER DAILY AND 9 MILLILITER NIGHTLY
  2. DILANTIN [Concomitant]
     Active Substance: PHENYTOIN
     Indication: Product used for unknown indication
     Dosage: 50 MILLIGRAM TABLET
  3. DILANTIN [Concomitant]
     Active Substance: PHENYTOIN
     Dosage: 100 MILLIGRAM CAPSULE
  4. CLONAZEPAM [Concomitant]
     Active Substance: CLONAZEPAM
     Indication: Product used for unknown indication
     Dosage: 0.5 MILLIGRAM TABLET
  5. CLONAZEPAM [Concomitant]
     Active Substance: CLONAZEPAM
     Dosage: 1 MILLIGRAM TABLET
  6. LANSOPRAZOLE [Concomitant]
     Active Substance: LANSOPRAZOLE
     Indication: Product used for unknown indication
  7. LACTULOSE [Concomitant]
     Active Substance: LACTULOSE
     Indication: Product used for unknown indication
  8. DEXTROAMPHETAMINE SACCHARATE, AMPHETAMINE ASPARTATE, DEXTROAMPHETAMINE [Concomitant]
     Active Substance: AMPHETAMINE ASPARTATE\AMPHETAMINE SULFATE\DEXTROAMPHETAMINE SACCHARATE\DEXTROAMPHETAMINE SULFATE
     Indication: Product used for unknown indication
  9. PHENYTOIN SODIUM [Concomitant]
     Active Substance: PHENYTOIN SODIUM
     Indication: Product used for unknown indication
  10. MEDROXYPROGESTERONE ACETATE [Concomitant]
     Active Substance: MEDROXYPROGESTERONE ACETATE
     Indication: Product used for unknown indication
  11. DOCUSATE SODIUM [Concomitant]
     Active Substance: DOCUSATE SODIUM
     Indication: Product used for unknown indication
  12. NAYZILAM [Concomitant]
     Active Substance: MIDAZOLAM
     Indication: Product used for unknown indication
  13. APTIOM [Concomitant]
     Active Substance: ESLICARBAZEPINE ACETATE
     Indication: Product used for unknown indication
  14. AMINOCAPROIC ACID [Concomitant]
     Active Substance: AMINOCAPROIC ACID
     Indication: Product used for unknown indication
  15. KLONOPIN [Concomitant]
     Active Substance: CLONAZEPAM
     Indication: Product used for unknown indication
  16. FLOVENT HFA [Concomitant]
     Active Substance: FLUTICASONE PROPIONATE
     Indication: Product used for unknown indication
  17. CETIRIZINE HCL [Concomitant]
     Active Substance: CETIRIZINE HYDROCHLORIDE
     Indication: Product used for unknown indication
  18. ALBUTEROL SULFATE [Concomitant]
     Active Substance: ALBUTEROL SULFATE
     Indication: Product used for unknown indication
  19. PREVACID [Concomitant]
     Active Substance: LANSOPRAZOLE
     Indication: Product used for unknown indication

REACTIONS (1)
  - Surgery [Unknown]
